FAERS Safety Report 8319283-0 (Version None)
Quarter: 2012Q2

REPORT INFORMATION
  Report Type: 
  Country: None (occurrence: None)
  Receive Date: 20120427
  Receipt Date: 20090928
  Transmission Date: 20120825
  Serious: No
  Sender: FDA-Public Use
  Company Number: US-TEVA-2009010240

PATIENT
  Sex: Female
  Weight: 69.008 kg

DRUGS (4)
  1. NUVIGIL [Suspect]
     Indication: SOMNOLENCE
     Dosage: 150 MILLIGRAM;
     Route: 048
     Dates: start: 20090804, end: 20090810
  2. NUVIGIL [Suspect]
     Dosage: 250 MILLIGRAM;
     Route: 048
     Dates: start: 20090811, end: 20090907
  3. OXYBUTIN XL [Concomitant]
     Dates: start: 20090501
  4. BIRTH CONTROL [Concomitant]
     Dates: start: 20090601

REACTIONS (3)
  - AGORAPHOBIA [None]
  - NAUSEA [None]
  - DRUG INEFFECTIVE FOR UNAPPROVED INDICATION [None]
